FAERS Safety Report 6022096-6 (Version None)
Quarter: 2008Q4

REPORT INFORMATION
  Report Type: 
  Country: None (occurrence: None)
  Receive Date: 20081229
  Receipt Date: 20081223
  Transmission Date: 20090506
  Serious: Yes (Congenital Anomaly)
  Sender: FDA-Public Use
  Company Number: US-ABBOTT-08P-163-0493219-00

PATIENT
  Weight: 4.806 kg

DRUGS (1)
  1. HUMIRA [Suspect]
     Indication: DRUG EXPOSURE DURING PREGNANCY
     Route: 064

REACTIONS (2)
  - CONGENITAL HIP DEFORMITY [None]
  - DRUG EXPOSURE DURING PREGNANCY [None]
